FAERS Safety Report 9908598 (Version 1)
Quarter: 2014Q1

REPORT INFORMATION
  Report Type: Spontaneous
  Country: US (occurrence: None)
  Receive Date: 20140212
  Receipt Date: 20140212
  Transmission Date: 20141002
  Serious: Yes (Other)
  Sender: FDA-Public Use
  Company Number: None

PATIENT
  Sex: Female

DRUGS (1)
  1. AIM CAVITY PROTECTION WITH WHITENING [Suspect]
     Dates: start: 201307, end: 20131204

REACTIONS (4)
  - Chest pain [None]
  - Discomfort [None]
  - Back pain [None]
  - Hypoaesthesia [None]
